FAERS Safety Report 20219939 (Version 1)
Quarter: 2021Q4

REPORT INFORMATION
  Report Type: Spontaneous
  Country: FR (occurrence: FR)
  Receive Date: 20211222
  Receipt Date: 20211222
  Transmission Date: 20220303
  Serious: Yes (Other)
  Sender: FDA-Public Use
  Company Number: FR-ANIPHARMA-2021-FR-000251

PATIENT
  Age: 68 Year
  Sex: Male

DRUGS (1)
  1. CLOBETASOL PROPIONATE [Suspect]
     Active Substance: CLOBETASOL PROPIONATE
     Indication: Drug reaction with eosinophilia and systemic symptoms
     Dosage: 30 GRAMS DAILY
     Route: 061

REACTIONS (3)
  - Diabetes mellitus [Recovered/Resolved]
  - Hypothyroidism [Recovered/Resolved]
  - Depression [Recovered/Resolved]
